FAERS Safety Report 15107361 (Version 1)
Quarter: 2018Q3

REPORT INFORMATION
  Report Type: Spontaneous
  Country: US (occurrence: US)
  Receive Date: 20180704
  Receipt Date: 20180704
  Transmission Date: 20181010
  Serious: No
  Sender: FDA-Public Use
  Company Number: US-JNJFOC-20180628084

PATIENT
  Sex: Male

DRUGS (2)
  1. PEPCID AC ORIGINAL STRENGTH [Suspect]
     Active Substance: FAMOTIDINE
     Route: 065
  2. PEPCID AC ORIGINAL STRENGTH [Suspect]
     Active Substance: FAMOTIDINE
     Indication: CARDIAC DISORDER
     Route: 065

REACTIONS (1)
  - Product use in unapproved indication [Unknown]
